FAERS Safety Report 22171090 (Version 2)
Quarter: 2023Q2

REPORT INFORMATION
  Report Type: Spontaneous
  Country: GB (occurrence: GB)
  Receive Date: 20230404
  Receipt Date: 20230412
  Transmission Date: 20230721
  Serious: Yes (Other)
  Sender: FDA-Public Use
  Company Number: GB-Accord-306500

PATIENT
  Age: 33 Year
  Sex: Female

DRUGS (6)
  1. CISPLATIN [Suspect]
     Active Substance: CISPLATIN
     Indication: Gestational trophoblastic tumour
     Dosage: DAYS 1 AND 2
  2. ETOPOSIDE [Suspect]
     Active Substance: ETOPOSIDE
     Indication: Gestational trophoblastic tumour
     Dosage: ON DAYS 1 AND 2
  3. ETOPOSIDE [Suspect]
     Active Substance: ETOPOSIDE
     Indication: Metastases to meninges
     Dosage: ON DAYS 1 AND 2
  4. CISPLATIN [Suspect]
     Active Substance: CISPLATIN
     Indication: Metastases to lung
     Dosage: DAYS 1 AND 2
  5. ETOPOSIDE [Suspect]
     Active Substance: ETOPOSIDE
     Indication: Metastases to lung
     Dosage: ON DAYS 1 AND 2
  6. CISPLATIN [Suspect]
     Active Substance: CISPLATIN
     Indication: Metastases to meninges
     Dosage: DAYS 1 AND 2

REACTIONS (3)
  - Haemoptysis [Recovered/Resolved]
  - Hydrocephalus [Recovered/Resolved]
  - Off label use [Unknown]
